FAERS Safety Report 20250763 (Version 1)
Quarter: 2021Q4

REPORT INFORMATION
  Report Type: Spontaneous
  Country: US (occurrence: US)
  Receive Date: 20211229
  Receipt Date: 20211229
  Transmission Date: 20220303
  Serious: No
  Sender: FDA-Public Use
  Company Number: US-COOPERSURGICAL, INC.-US-2020CPS003171

PATIENT
  Age: 24 Year
  Sex: Female
  Weight: 45.351 kg

DRUGS (2)
  1. PARAGARD T 380A [Suspect]
     Active Substance: COPPER
     Indication: Contraception
     Dosage: UNK
     Route: 015
     Dates: start: 20181105, end: 20201104
  2. ACYCLOVIR                          /00587301/ [Concomitant]
     Indication: Herpes virus infection
     Dosage: UNK
     Route: 065

REACTIONS (4)
  - Abdominal pain [Recovered/Resolved]
  - Muscle spasms [Recovered/Resolved]
  - Abnormal uterine bleeding [Recovered/Resolved]
  - Device dislocation [Recovered/Resolved]

NARRATIVE: CASE EVENT DATE: 20201001
